FAERS Safety Report 9624660 (Version 1)
Quarter: 2013Q4

REPORT INFORMATION
  Report Type: Spontaneous
  Country: TR (occurrence: None)
  Receive Date: 20131010
  Receipt Date: 20131010
  Transmission Date: 20140711
  Serious: Yes (Hospitalization, Other)
  Sender: FDA-Public Use
  Company Number: 1933647

PATIENT
  Age: 26 Month
  Sex: 0

DRUGS (5)
  1. VINCRISTINE SULFATE [Suspect]
     Indication: ACUTE LYMPHOCYTIC LEUKAEMIA
     Route: 042
  2. METHOTREXATE [Suspect]
     Indication: ACUTE LYMPHOCYTIC LEUKAEMIA
     Route: 037
  3. METHYLPREDNISOLONE [Suspect]
     Indication: ACUTE LYMPHOCYTIC LEUKAEMIA
     Route: 048
  4. DAUNORUBICIN [Suspect]
     Indication: ACUTE LYMPHOCYTIC LEUKAEMIA
     Route: 042
  5. L-ASPARAGINASE [Suspect]
     Indication: ACUTE LYMPHOCYTIC LEUKAEMIA
     Dosage: 5000 UNIT/M^2/D, UKNOWN, INTRAVENOUS.

REACTIONS (5)
  - Eyelid ptosis [None]
  - Lacrimation increased [None]
  - Dacryostenosis acquired [None]
  - Strabismus [None]
  - Neuropathy peripheral [None]
